FAERS Safety Report 19814188 (Version 1)
Quarter: 2021Q3

REPORT INFORMATION
  Report Type: Spontaneous
  Country: US (occurrence: US)
  Receive Date: 20210910
  Receipt Date: 20210910
  Transmission Date: 20211014
  Serious: No
  Sender: FDA-Public Use
  Company Number: US-EIGER BIOPHARMACEUTICALS-EIG-2021-000009

PATIENT
  Sex: Male

DRUGS (2)
  1. ZOKINVY [Suspect]
     Active Substance: LONAFARNIB
     Indication: PROGERIA
     Dosage: 75 MG, TAKE ONE TAB IN THE MORNING
     Route: 048
     Dates: start: 20210304
  2. ZOKINVY [Suspect]
     Active Substance: LONAFARNIB
     Dosage: 50 MG, TAKE 2 TABS EVERY AFTERNOON
     Route: 048
     Dates: start: 20210304

REACTIONS (2)
  - Product dose omission issue [Unknown]
  - Diarrhoea [Unknown]
